FAERS Safety Report 5502181-5 (Version None)
Quarter: 2007Q4

REPORT INFORMATION
  Report Type: 
  Country: None (occurrence: None)
  Receive Date: 20071019
  Receipt Date: 20070101
  Transmission Date: 20080405
  Serious: Yes (Other)
  Sender: FDA-Public Use
  Company Number: PHEH2007US00556

PATIENT
  Age: 59 Year
  Sex: Male
  Weight: 99.8 kg

DRUGS (4)
  1. ZOMETA [Suspect]
     Indication: METASTASES TO BONE
     Dosage: 4, INFUSION
     Dates: start: 20061218
  2. CASODEX [Concomitant]
  3. METHADONE HCL [Concomitant]
  4. VIADUR (LEUPRORELIN ACETATE) [Concomitant]

REACTIONS (10)
  - ABNORMAL BEHAVIOUR [None]
  - ABNORMAL DREAMS [None]
  - AGGRESSION [None]
  - AGITATION [None]
  - ARTHRALGIA [None]
  - CONFUSIONAL STATE [None]
  - DISORIENTATION [None]
  - DRY MOUTH [None]
  - MUSCULOSKELETAL PAIN [None]
  - SLEEP DISORDER [None]
